FAERS Safety Report 23723506 (Version 1)
Quarter: 2024Q2

REPORT INFORMATION
  Report Type: Spontaneous
  Country: US (occurrence: US)
  Receive Date: 20240409
  Receipt Date: 20240409
  Transmission Date: 20240716
  Serious: No
  Sender: FDA-Public Use
  Company Number: US-SA-SAC20240402001257

PATIENT
  Age: 57 Year
  Sex: Female
  Weight: 48.3 kg

DRUGS (14)
  1. DUPIXENT [Suspect]
     Active Substance: DUPILUMAB
     Indication: Dermatitis atopic
     Dosage: 300MG QOW
     Route: 058
  2. PROMETHAZINE HYDROCHLORIDE [Concomitant]
     Active Substance: PROMETHAZINE HYDROCHLORIDE
  3. PREMARIN [Concomitant]
     Active Substance: ESTROGENS, CONJUGATED
  4. SINGULAIR [Concomitant]
     Active Substance: MONTELUKAST SODIUM
  5. TYLENOL [Concomitant]
     Active Substance: ACETAMINOPHEN
  6. FLUOXETINE [Concomitant]
     Active Substance: FLUOXETINE HYDROCHLORIDE
  7. DEXILANT [Concomitant]
     Active Substance: DEXLANSOPRAZOLE
  8. VITAMIN D3 [Concomitant]
     Active Substance: CHOLECALCIFEROL
  9. TOPAMAX [Concomitant]
     Active Substance: TOPIRAMATE
  10. SCOPOLAMINE [Concomitant]
     Active Substance: SCOPOLAMINE
     Dosage: 1MG FOR 3 DAYS
  11. BUSPIRONE HCL [Concomitant]
     Active Substance: BUSPIRONE HYDROCHLORIDE
  12. CLARITIN [Concomitant]
     Active Substance: LORATADINE
  13. ALLEGRA D-12 HOUR [Concomitant]
     Active Substance: FEXOFENADINE HYDROCHLORIDE\PSEUDOEPHEDRINE HYDROCHLORIDE
  14. ALBUTEROL SULFATE [Concomitant]
     Active Substance: ALBUTEROL SULFATE

REACTIONS (5)
  - Rash macular [Not Recovered/Not Resolved]
  - Skin haemorrhage [Recovering/Resolving]
  - Pruritus [Recovering/Resolving]
  - Skin exfoliation [Recovering/Resolving]
  - Dry skin [Recovering/Resolving]

NARRATIVE: CASE EVENT DATE: 20240301
